FAERS Safety Report 20278915 (Version 4)
Quarter: 2022Q1

REPORT INFORMATION
  Report Type: Report from Study
  Country: FR (occurrence: FR)
  Receive Date: 20220103
  Receipt Date: 20220206
  Transmission Date: 20220423
  Serious: Yes (Hospitalization, Other)
  Sender: FDA-Public Use
  Company Number: FR-NOVARTISPH-NVSC2021FR297320

PATIENT
  Age: 57 Year
  Sex: Female
  Weight: 57 kg

DRUGS (4)
  1. DABRAFENIB [Suspect]
     Active Substance: DABRAFENIB
     Indication: Metastatic malignant melanoma
     Dosage: 300 MG, QD
     Route: 048
     Dates: start: 20200527
  2. TRAMETINIB [Suspect]
     Active Substance: TRAMETINIB
     Indication: Metastatic malignant melanoma
     Dosage: 2 MG, QD
     Route: 048
     Dates: start: 20200527
  3. PREDNISONE [Concomitant]
     Active Substance: PREDNISONE
     Indication: Product used for unknown indication
     Dosage: UNK (ND)
     Route: 048
  4. VIMPAT [Concomitant]
     Active Substance: LACOSAMIDE
     Indication: Epilepsy
     Dosage: 100 MG
     Route: 048
     Dates: start: 20211217, end: 20211224

REACTIONS (9)
  - Cerebral haemorrhage [Not Recovered/Not Resolved]
  - Epilepsy [Recovered/Resolved]
  - Hemiparesis [Unknown]
  - Mutism [Unknown]
  - Agitation [Unknown]
  - Brain oedema [Not Recovered/Not Resolved]
  - Diabetes insipidus [Recovered/Resolved]
  - Headache [Recovering/Resolving]
  - Diarrhoea [Recovering/Resolving]

NARRATIVE: CASE EVENT DATE: 20211207
